FAERS Safety Report 12672100 (Version 1)
Quarter: 2016Q3

REPORT INFORMATION
  Report Type: Spontaneous
  Country: US (occurrence: US)
  Receive Date: 20160822
  Receipt Date: 20160822
  Transmission Date: 20161109
  Serious: Yes (Other)
  Sender: FDA-Public Use
  Company Number: US-BAYER-2016-159369

PATIENT
  Age: 17 Year
  Sex: Female

DRUGS (1)
  1. SORAFENIB (RAF KINASE INHIBITOR) [Suspect]
     Active Substance: SORAFENIB
     Indication: ALVEOLAR SOFT PART SARCOMA
     Dosage: UNK

REACTIONS (2)
  - Lymphadenitis bacterial [None]
  - Off label use [None]
